FAERS Safety Report 13720352 (Version 1)
Quarter: 2017Q3

REPORT INFORMATION
  Report Type: Spontaneous
  Country: US (occurrence: US)
  Receive Date: 20170705
  Receipt Date: 20170705
  Transmission Date: 20171127
  Serious: Yes (Hospitalization)
  Sender: FDA-Public Use
  Company Number: None

PATIENT
  Age: 49 Year
  Sex: Female

DRUGS (8)
  1. LOSARTAN POT [Concomitant]
     Active Substance: LOSARTAN POTASSIUM
  2. FUROSEMIDE. [Concomitant]
     Active Substance: FUROSEMIDE
  3. HYDROCHLOROT [Concomitant]
     Active Substance: HYDROCHLOROTHIAZIDE
  4. AMLOD/VALS [Concomitant]
  5. LUPRON DEPOT [Suspect]
     Active Substance: LEUPROLIDE ACETATE
     Indication: ENDOMETRIOSIS
     Route: 058
     Dates: start: 20170518
  6. VALSARTAN. [Concomitant]
     Active Substance: VALSARTAN
  7. DIOV [Concomitant]
  8. CARBAMAZEPIN [Concomitant]
     Active Substance: CARBAMAZEPINE

REACTIONS (2)
  - Oedema [None]
  - Hypertension [None]

NARRATIVE: CASE EVENT DATE: 20170703
